FAERS Safety Report 8565422-6 (Version None)
Quarter: 2012Q3

REPORT INFORMATION
  Report Type: 
  Country: None (occurrence: None)
  Receive Date: 20120803
  Receipt Date: 20120730
  Transmission Date: 20120928
  Serious: Yes (Hospitalization)
  Sender: FDA-Public Use
  Company Number: US-PFIZER INC-2012166246

PATIENT
  Sex: Female

DRUGS (2)
  1. LYRICA [Suspect]
     Indication: NEUROPATHY PERIPHERAL
     Dosage: UNK
  2. AMPYRA [Suspect]
     Dosage: 10 MG, 2X/DAY
     Route: 048
     Dates: start: 20120605

REACTIONS (4)
  - CHEST DISCOMFORT [None]
  - NAUSEA [None]
  - CHEST PAIN [None]
  - HYPERHIDROSIS [None]
